FAERS Safety Report 10061106 (Version 1)
Quarter: 2014Q2

REPORT INFORMATION
  Report Type: Spontaneous
  Country: US (occurrence: US)
  Receive Date: 20140406
  Receipt Date: 20140406
  Transmission Date: 20141212
  Serious: No
  Sender: FDA-Public Use
  Company Number: US-TEVA-472264USA

PATIENT
  Sex: Female

DRUGS (1)
  1. QVAR [Suspect]
     Route: 055

REACTIONS (4)
  - Dry mouth [Unknown]
  - Paraesthesia oral [Unknown]
  - Vomiting [Unknown]
  - Wrong technique in drug usage process [Unknown]
